FAERS Safety Report 12154007 (Version 2)
Quarter: 2016Q1

REPORT INFORMATION
  Report Type: Report from Study
  Country: US (occurrence: US)
  Receive Date: 20160307
  Receipt Date: 20160315
  Transmission Date: 20160526
  Serious: Yes (Death, Hospitalization, Other)
  Sender: FDA-Public Use
  Company Number: US-AMGEN-USASL2016026309

PATIENT
  Age: 62 Year
  Sex: Female
  Weight: 53.52 kg

DRUGS (16)
  1. ARIMIDEX [Concomitant]
     Active Substance: ANASTROZOLE
     Dosage: UNK
     Dates: start: 201102
  2. BUSPIRONE [Concomitant]
     Active Substance: BUSPIRONE HYDROCHLORIDE
  3. IBRANCE [Concomitant]
     Active Substance: PALBOCICLIB
     Dosage: UNK
     Dates: start: 201511
  4. CARBOPLATIN. [Concomitant]
     Active Substance: CARBOPLATIN
     Dosage: UNK
     Dates: start: 201406
  5. AROMASIN [Concomitant]
     Active Substance: EXEMESTANE
  6. AFINITOR [Concomitant]
     Active Substance: EVEROLIMUS
  7. XARELTO [Concomitant]
     Active Substance: RIVAROXABAN
  8. ZOFRAN [Concomitant]
     Active Substance: ONDANSETRON HYDROCHLORIDE
     Dosage: 8 MG, AS NECESSARY
     Route: 048
  9. HALAVEN [Concomitant]
     Active Substance: ERIBULIN MESYLATE
  10. GEMCITABINE [Concomitant]
     Active Substance: GEMCITABINE\GEMCITABINE HYDROCHLORIDE
     Dosage: UNK
     Dates: start: 201406
  11. AC T [Concomitant]
  12. LETROZOLE. [Concomitant]
     Active Substance: LETROZOLE
     Dosage: UNK
     Dates: start: 201511
  13. XELODA [Concomitant]
     Active Substance: CAPECITABINE
     Dosage: UNK
     Dates: start: 201401
  14. NEULASTA [Concomitant]
     Active Substance: PEGFILGRASTIM
  15. ARANESP [Suspect]
     Active Substance: DARBEPOETIN ALFA
     Indication: ANAEMIA
     Dosage: UNK
     Route: 065
  16. EMEND [Concomitant]
     Active Substance: APREPITANT

REACTIONS (31)
  - Nausea [Unknown]
  - Vomiting [Unknown]
  - Mobility decreased [Unknown]
  - Hypotension [Unknown]
  - Pulmonary embolism [Unknown]
  - Pleural effusion [Unknown]
  - Pneumothorax [Unknown]
  - Breast cancer metastatic [Fatal]
  - Dysphagia [Unknown]
  - Malaise [Unknown]
  - Ascites [Unknown]
  - Hypophagia [Unknown]
  - Depression [Unknown]
  - Ejection fraction abnormal [Unknown]
  - No therapeutic response [Unknown]
  - Fatigue [Unknown]
  - Anxiety [Unknown]
  - Syncope [Unknown]
  - Hypokalaemia [Unknown]
  - Asthenia [Unknown]
  - Intestinal obstruction [Recovered/Resolved]
  - Acute kidney injury [Unknown]
  - Dyspepsia [Unknown]
  - Diarrhoea [Recovered/Resolved]
  - Hypercalcaemia [Unknown]
  - Subarachnoid haemorrhage [Unknown]
  - Pericardial effusion [Unknown]
  - Haemoglobin abnormal [Unknown]
  - Dehydration [Unknown]
  - Cachexia [Unknown]
  - Impaired work ability [Unknown]

NARRATIVE: CASE EVENT DATE: 20150720
